FAERS Safety Report 6098909-9 (Version None)
Quarter: 2009Q1

REPORT INFORMATION
  Report Type: 
  Country: None (occurrence: None)
  Receive Date: 20090302
  Receipt Date: 20090218
  Transmission Date: 20090719
  Serious: Yes (Hospitalization, Disabling)
  Sender: FDA-Public Use
  Company Number: PT-PFIZER INC-2008095097

PATIENT

DRUGS (10)
  1. LYRICA [Suspect]
     Indication: FIBROMYALGIA
     Route: 048
     Dates: start: 20070601
  2. VALIUM [Suspect]
  3. LASIX [Concomitant]
     Route: 048
  4. TENORMIN [Concomitant]
  5. KAINEVER [Concomitant]
     Route: 048
  6. DIGASSIM [Concomitant]
     Route: 048
  7. TRYPTIZOL [Concomitant]
     Route: 048
  8. DAFLON [Concomitant]
     Route: 048
  9. CLONIX [Concomitant]
     Route: 048
  10. NEURONTIN [Concomitant]
     Route: 048

REACTIONS (10)
  - BALANCE DISORDER [None]
  - CHEST PAIN [None]
  - DRY EYE [None]
  - EYE IRRITATION [None]
  - FALL [None]
  - HYPOAESTHESIA [None]
  - LOSS OF CONSCIOUSNESS [None]
  - PARAESTHESIA [None]
  - PARALYSIS [None]
  - VISUAL IMPAIRMENT [None]
